FAERS Safety Report 17464009 (Version 1)
Quarter: 2020Q1

REPORT INFORMATION
  Report Type: Spontaneous
  Country: US (occurrence: US)
  Receive Date: 20200226
  Receipt Date: 20200226
  Transmission Date: 20200409
  Serious: No
  Sender: FDA-Public Use
  Company Number: US-MYLANLABS-2020M1016705

PATIENT
  Age: 52 Year
  Sex: Female
  Weight: 138 kg

DRUGS (2)
  1. EMSAM [Suspect]
     Active Substance: SELEGILINE
     Indication: DEPRESSION
     Dosage: UNK UNK, QD (EVERY 24 HOURS)
     Route: 062
     Dates: end: 20200204
  2. EMSAM [Suspect]
     Active Substance: SELEGILINE
     Dosage: UNK UNK, QD (EVERY 24 HOURS)
     Route: 062
     Dates: start: 20200205

REACTIONS (2)
  - Drug ineffective [Unknown]
  - Product adhesion issue [Unknown]
